FAERS Safety Report 16748117 (Version 1)
Quarter: 2019Q3

REPORT INFORMATION
  Report Type: Spontaneous
  Country: PL (occurrence: PL)
  Receive Date: 20190827
  Receipt Date: 20190827
  Transmission Date: 20191005
  Serious: Yes (Death)
  Sender: FDA-Public Use
  Company Number: PL-EXELIXIS-CABO-19023354

PATIENT
  Age: 56 Year
  Sex: Female

DRUGS (1)
  1. CABOMETYX [Suspect]
     Active Substance: CABOZANTINIB S-MALATE
     Indication: RENAL CANCER
     Dosage: UNK

REACTIONS (8)
  - Mucosal inflammation [Unknown]
  - Hypertension [Unknown]
  - Death [Fatal]
  - Alanine aminotransferase increased [Unknown]
  - Palmar-plantar erythrodysaesthesia syndrome [Unknown]
  - Aspartate aminotransferase increased [Unknown]
  - Weight increased [Unknown]
  - Malaise [Unknown]
